FAERS Safety Report 8592748-2 (Version None)
Quarter: 2012Q3

REPORT INFORMATION
  Report Type: 
  Country: None (occurrence: None)
  Receive Date: 20120814
  Receipt Date: 20120808
  Transmission Date: 20120928
  Serious: Yes (Other)
  Sender: FDA-Public Use
  Company Number: BR-PFIZER INC-2012193478

PATIENT
  Age: 47 Year
  Sex: Female
  Weight: 71 kg

DRUGS (4)
  1. CARDIZEM [Concomitant]
     Indication: BLOOD PRESSURE
     Dosage: 30 MG, UNK
     Dates: start: 20110808
  2. TRENTAL ^AVENTIS PHARMA^ [Concomitant]
     Indication: ANTICOAGULANT THERAPY
     Dosage: 400 MG, UNK
     Dates: start: 20020808
  3. LIPITOR [Suspect]
     Indication: PROPHYLAXIS
     Dosage: 10 MG, UNK
     Route: 048
     Dates: start: 19990808
  4. LEUKERAN [Concomitant]
     Indication: MUSCULOSKELETAL PAIN
     Dosage: 2 MG, UNK
     Dates: start: 20090808

REACTIONS (2)
  - CARDIAC DISORDER [None]
  - CHEST PAIN [None]
